FAERS Safety Report 7820462-7 (Version None)
Quarter: 2011Q4

REPORT INFORMATION
  Report Type: 
  Country: None (occurrence: None)
  Receive Date: 20111012
  Receipt Date: 20110928
  Transmission Date: 20120403
  Serious: Yes (Hospitalization)
  Sender: FDA-Public Use
  Company Number: 2011SP046015

PATIENT
  Age: 75 Year
  Sex: Female

DRUGS (4)
  1. ACTONEL [Concomitant]
  2. ASPIRIN [Concomitant]
  3. NASONEX [Concomitant]
  4. CLARINEX [Suspect]
     Indication: SEASONAL ALLERGY
     Dosage: 5 MG; QD; PO
     Route: 048
     Dates: end: 20110921

REACTIONS (3)
  - HEADACHE [None]
  - COLITIS ISCHAEMIC [None]
  - NASAL CONGESTION [None]
